FAERS Safety Report 24359992 (Version 1)
Quarter: 2024Q3

REPORT INFORMATION
  Report Type: Spontaneous
  Country: US (occurrence: US)
  Receive Date: 20240925
  Receipt Date: 20240925
  Transmission Date: 20241017
  Serious: Yes (Hospitalization, Other)
  Sender: CATALENT PHARMA
  Company Number: US-CATALENT PHARMA SOLUTIONS-CAT-001385-2024

PATIENT
  Age: 52 Year
  Sex: Female

DRUGS (18)
  1. NAPROXEN [Suspect]
     Active Substance: NAPROXEN
     Indication: Back pain
     Dosage: 500 MG TWICE A DAY
     Route: 048
  2. PROTONIX [Concomitant]
     Active Substance: PANTOPRAZOLE SODIUM
     Dosage: 40 MG ONE TABLET BY MOUTH DAILY
     Route: 048
  3. VITAMIN C [Concomitant]
     Active Substance: ASCORBIC ACID
     Indication: Product used for unknown indication
     Dosage: 1,000 MG ONE TABLET BY MOUTH TWO TIMES A DAY
     Route: 048
  4. CETIRIZINE [Concomitant]
     Active Substance: CETIRIZINE HYDROCHLORIDE
     Indication: Product used for unknown indication
     Dosage: 5 MG ONE TABLET BY MOUTH DAILY
     Route: 048
  5. Estradiol topical [Concomitant]
     Indication: Product used for unknown indication
     Dosage: 1 G VAGINAL AT BEDTIME THREE TIMES A WEEK
     Route: 061
  6. FLAREX [Concomitant]
     Active Substance: FLUOROMETHOLONE ACETATE
     Indication: Product used for unknown indication
     Dosage: ONE DROPS BOTH EARS AS DIRECTED
     Route: 065
  7. FLONASE [Concomitant]
     Active Substance: FLUTICASONE PROPIONATE
     Indication: Product used for unknown indication
     Dosage: TWO SPRAYS NASAL INHALATION DAILY
  8. GABAPENTIN [Concomitant]
     Active Substance: GABAPENTIN
     Indication: Product used for unknown indication
     Dosage: 300 MG ONE CAPSULE BY MOUTH THREE TIMES A DAY
     Route: 048
  9. XIIDRA [Concomitant]
     Active Substance: LIFITEGRAST
     Indication: Product used for unknown indication
     Dosage: ONE DROP BOTH EYES TWO TIMES A DAY
  10. MAGNESIUM OXIDE [Concomitant]
     Active Substance: MAGNESIUM OXIDE
     Indication: Product used for unknown indication
     Dosage: ONE TABLET BY MOUTH TWO TIMES A DAY
     Route: 048
  11. METHOCARBAMOL [Concomitant]
     Active Substance: METHOCARBAMOL
     Indication: Product used for unknown indication
     Dosage: 750 MG ONE TABLET BY MOUTH EVERY 8 HR AS NEEDED
     Route: 048
  12. POTASSIUM [Concomitant]
     Active Substance: POTASSIUM
     Indication: Product used for unknown indication
     Dosage: TWO DROPS BY MOUTH DAILY
     Route: 048
  13. IRON [Concomitant]
     Active Substance: IRON
     Indication: Product used for unknown indication
     Dosage: TWO PATCHES TRANSDERMAL DAILY
     Route: 062
  14. Prenatal gummies [Concomitant]
     Indication: Product used for unknown indication
     Dosage: ONE GUMMY BY MOUTH TWO TIMES A DAY
     Route: 048
  15. FISH OIL [Concomitant]
     Active Substance: FISH OIL
     Indication: Product used for unknown indication
     Dosage: ONE CAPSULE BY MOUTH DAILY
     Route: 048
  16. TIZANIDINE [Concomitant]
     Active Substance: TIZANIDINE
     Indication: Product used for unknown indication
     Dosage: 4 MG ONE TABLET BY MOUTH AT BEDTIME
     Route: 048
  17. TRAMADOL [Concomitant]
     Active Substance: TRAMADOL\TRAMADOL HYDROCHLORIDE
     Indication: Product used for unknown indication
     Dosage: 100 MG TWO TABLETS BY MOUTH THREE TIMES A DAY AS NEEDED
     Route: 048
  18. AMBIEN [Concomitant]
     Active Substance: ZOLPIDEM TARTRATE
     Indication: Product used for unknown indication
     Dosage: 10 MG ONE TABLET BY MOUTH AT BEDTIME
     Route: 048

REACTIONS (1)
  - Gastrointestinal haemorrhage [Recovered/Resolved]
